FAERS Safety Report 15470539 (Version 1)
Quarter: 2018Q4

REPORT INFORMATION
  Report Type: Report from Study
  Country: US (occurrence: US)
  Receive Date: 20181005
  Receipt Date: 20181005
  Transmission Date: 20190205
  Serious: Yes (Other)
  Sender: FDA-Public Use
  Company Number: US-SHIRE-US201834270

PATIENT
  Sex: Female

DRUGS (1)
  1. 643 (LANADELUMAB) [Suspect]
     Active Substance: LANADELUMAB
     Indication: PRODUCT USED FOR UNKNOWN INDICATION
     Dosage: UNK, UNKNOWN
     Route: 065

REACTIONS (3)
  - Hereditary angioedema [Unknown]
  - Abortion spontaneous [Unknown]
  - Exposure during pregnancy [Unknown]
